FAERS Safety Report 5215028-1 (Version None)
Quarter: 2007Q1

REPORT INFORMATION
  Report Type: 
  Country: None (occurrence: None)
  Receive Date: 20070122
  Receipt Date: 20070112
  Transmission Date: 20070707
  Serious: Yes (Other)
  Sender: FDA-Public Use
  Company Number: CA-PFIZER INC-2006132031

PATIENT
  Sex: Male

DRUGS (1)
  1. ATORVASTATIN CALCIUM [Suspect]
     Route: 048

REACTIONS (6)
  - ABDOMINAL INFECTION [None]
  - ARTHRALGIA [None]
  - GASTROINTESTINAL OBSTRUCTION [None]
  - MUSCLE SPASMS [None]
  - MYALGIA [None]
  - POOR QUALITY SLEEP [None]
